FAERS Safety Report 23261131 (Version 1)
Quarter: 2023Q4

REPORT INFORMATION
  Report Type: Spontaneous
  Country: US (occurrence: US)
  Receive Date: 20231205
  Receipt Date: 20231205
  Transmission Date: 20240110
  Serious: Yes (Hospitalization, Other)
  Sender: FDA-Public Use
  Company Number: US-JNJFOC-20231181865

PATIENT

DRUGS (2)
  1. RISPERDAL [Suspect]
     Active Substance: RISPERIDONE
     Indication: Product used for unknown indication
     Route: 065
  2. LUMATEPERONE [Suspect]
     Active Substance: LUMATEPERONE
     Indication: Schizoaffective disorder
     Route: 065

REACTIONS (2)
  - Schizoaffective disorder [Unknown]
  - Drug ineffective [Unknown]
